FAERS Safety Report 10272978 (Version 1)
Quarter: 2014Q1

REPORT INFORMATION
  Report Type: Spontaneous
  Country: US (occurrence: None)
  Receive Date: 20140306
  Receipt Date: 20140306
  Transmission Date: 20141002
  Serious: Yes (Hospitalization)
  Sender: FDA-Public Use
  Company Number: 163-21880-13061846

PATIENT
  Age: 74 Year
  Sex: Male
  Weight: 83.46 kg

DRUGS (11)
  1. REVLIMID (LENALIDOMIDE) (10 MILLIGRAM, CAPSULES) [Suspect]
     Indication: PLASMA CELL MYELOMA
     Route: 048
     Dates: start: 20121201
  2. JANUVIA (SITAGLIPTIN PHOSPHATE) (TABLETS) [Concomitant]
  3. ALDACTONE (SPIRONOLACTONE) (TABLETS) [Concomitant]
  4. SEROQUEL (QUETIAPINE FUMARATE) (TABLETS) [Concomitant]
  5. CRESTOR (ROSUVASTATIN) (TABLETS) [Concomitant]
  6. FLOMAX (TAMSULOSIN HYDROCHLORIDE) (CAPSULES) [Concomitant]
  7. PANTOPRAZOLE SODIUM (PANTOPRAZOLE SODIUM) [Concomitant]
  8. DEXAMETHASONE (DEXAMETHASONE) [Concomitant]
  9. VITAMIN B12 (CYANOCOBALAMIN) [Concomitant]
  10. CITALOPRAM (CITALOPRAM) [Concomitant]
  11. FENTANYL (FENTANYL) [Concomitant]

REACTIONS (2)
  - Anaemia [None]
  - Platelet count decreased [None]
